FAERS Safety Report 6008768-8 (Version None)
Quarter: 2008Q4

REPORT INFORMATION
  Report Type: 
  Country: None (occurrence: None)
  Receive Date: 20081217
  Receipt Date: 20081208
  Transmission Date: 20090506
  Serious: Yes (Hospitalization)
  Sender: FDA-Public Use
  Company Number: GB-AMGEN-UK322767

PATIENT
  Sex: Male
  Weight: 57 kg

DRUGS (2)
  1. PANITUMUMAB [Suspect]
     Indication: COLORECTAL CANCER
     Route: 042
     Dates: start: 20081113, end: 20081113
  2. IRINOTECAN HYDROCHLORIDE [Suspect]
     Route: 042
     Dates: start: 20081113, end: 20081113

REACTIONS (1)
  - LOWER RESPIRATORY TRACT INFECTION [None]
